FAERS Safety Report 8582839-4 (Version None)
Quarter: 2012Q3

REPORT INFORMATION
  Report Type: 
  Country: None (occurrence: None)
  Receive Date: 20120809
  Receipt Date: 19890918
  Transmission Date: 20120928
  Serious: Yes (Death)
  Sender: FDA-Public Use
  Company Number: US-ROCHE-1098254

PATIENT
  Age: 45 Year
  Sex: Male

DRUGS (14)
  1. NITROGLYCERIN SUBLINGUAL [Concomitant]
  2. LIDOCAINE [Concomitant]
  3. LOPRESSOR [Concomitant]
  4. LASIX [Concomitant]
  5. LIDOCAINE BOLUS [Concomitant]
     Route: 042
  6. LOPRESSOR [Concomitant]
  7. ACTIVASE [Suspect]
     Indication: ACUTE MYOCARDIAL INFARCTION
     Route: 040
     Dates: start: 19890820, end: 19890820
  8. POTASSIUM [Concomitant]
  9. VALIUM [Concomitant]
  10. LOPRESSOR [Concomitant]
  11. ACTIVASE [Suspect]
     Route: 041
     Dates: start: 19890820, end: 19890820
  12. VERAPAMIL [Concomitant]
  13. VALIUM [Concomitant]
     Route: 042
  14. DIGOXIN [Concomitant]

REACTIONS (1)
  - DEATH [None]
